FAERS Safety Report 11515851 (Version 1)
Quarter: 2015Q3

REPORT INFORMATION
  Report Type: Spontaneous
  Country: MY (occurrence: MY)
  Receive Date: 20150916
  Receipt Date: 20150916
  Transmission Date: 20151125
  Serious: Yes (Other)
  Sender: FDA-Public Use
  Company Number: MY-ACTAVIS-2015-13210

PATIENT
  Age: 56 Year
  Sex: Female

DRUGS (1)
  1. DHASOLONE [Suspect]
     Active Substance: PREDNISOLONE
     Indication: HYPERSENSITIVITY
     Dosage: 20 MG, DAILY
     Route: 048

REACTIONS (1)
  - Lip swelling [Unknown]
